FAERS Safety Report 6015723-0 (Version None)
Quarter: 2008Q4

REPORT INFORMATION
  Report Type: 
  Country: None (occurrence: None)
  Receive Date: 20081222
  Receipt Date: 20081212
  Transmission Date: 20090506
  Serious: Yes (Other)
  Sender: FDA-Public Use
  Company Number: US-WYE-H07186708

PATIENT
  Age: 36 Year
  Sex: Male

DRUGS (1)
  1. PRISTIQ [Suspect]
     Indication: DEPRESSION
     Route: 048
     Dates: start: 20081124

REACTIONS (3)
  - CRYING [None]
  - EMOTIONAL DISORDER [None]
  - SUICIDAL IDEATION [None]
